FAERS Safety Report 18721702 (Version 3)
Quarter: 2021Q2

REPORT INFORMATION
  Report Type: Report from Study
  Country: None (occurrence: NL)
  Receive Date: 20210110
  Receipt Date: 20210406
  Transmission Date: 20210717
  Serious: Yes (Hospitalization, Other)
  Sender: FDA-Public Use
  Company Number: NL-ABBVIE-21K-114-3721651-00

PATIENT
  Age: 83 Year
  Sex: Female
  Weight: 62 kg

DRUGS (12)
  1. RIVOTRIL [Concomitant]
     Active Substance: CLONAZEPAM
     Indication: PRODUCT USED FOR UNKNOWN INDICATION
  2. MADOPAR DISPERSIBLE [Concomitant]
     Indication: PARKINSON^S DISEASE
  3. MACROGOL [Concomitant]
     Active Substance: POLYETHYLENE GLYCOLS
     Indication: ABNORMAL FAECES
  4. LACTULOSE. [Concomitant]
     Active Substance: LACTULOSE
     Indication: ABNORMAL FAECES
  5. LEVODOPA [Concomitant]
     Active Substance: LEVODOPA
     Indication: PRODUCT USED FOR UNKNOWN INDICATION
     Dosage: LEVODOPA + ENZYME INHIBITOR
  6. DUODOPA [Suspect]
     Active Substance: CARBIDOPA\LEVODOPA
  7. CLOZAPINE. [Concomitant]
     Active Substance: CLOZAPINE
     Indication: HALLUCINATION
  8. DUODOPA [Suspect]
     Active Substance: CARBIDOPA\LEVODOPA
     Indication: PARKINSON^S DISEASE
     Dosage: MD: 6.5 ML, CD: 3.7 ML/H, ED: 2.4 ML?REMAINS AT 16 HOURS
     Route: 050
     Dates: start: 20090106
  9. RIVASTIGMIN [Concomitant]
     Active Substance: RIVASTIGMINE
     Indication: COGNITIVE DISORDER
  10. SINEMET [Concomitant]
     Active Substance: CARBIDOPA\LEVODOPA
     Indication: PARKINSON^S DISEASE
  11. SYMMETREL [Concomitant]
     Active Substance: AMANTADINE HYDROCHLORIDE
     Indication: PARKINSON^S DISEASE
  12. FORLAX [Concomitant]
     Active Substance: POLYETHYLENE GLYCOL 4000
     Indication: ABNORMAL FAECES
     Dates: start: 2020

REACTIONS (17)
  - Arthralgia [Not Recovered/Not Resolved]
  - Suspected COVID-19 [Unknown]
  - Hallucination [Not Recovered/Not Resolved]
  - Pyrexia [Not Recovered/Not Resolved]
  - Weight decreased [Not Recovered/Not Resolved]
  - Memory impairment [Not Recovered/Not Resolved]
  - Wheelchair user [Not Recovered/Not Resolved]
  - Stoma site discharge [Not Recovered/Not Resolved]
  - Insomnia [Not Recovered/Not Resolved]
  - Hallucination, visual [Unknown]
  - Bladder catheterisation [Not Recovered/Not Resolved]
  - Oxygen saturation decreased [Not Recovered/Not Resolved]
  - Viral infection [Unknown]
  - Cognitive disorder [Not Recovered/Not Resolved]
  - Fall [Recovered/Resolved]
  - Stoma site erythema [Unknown]
  - Constipation [Not Recovered/Not Resolved]

NARRATIVE: CASE EVENT DATE: 2020
